FAERS Safety Report 21564602 (Version 1)
Quarter: 2022Q4

REPORT INFORMATION
  Report Type: Spontaneous
  Country: FR (occurrence: FR)
  Receive Date: 20221108
  Receipt Date: 20221108
  Transmission Date: 20230113
  Serious: Yes (Hospitalization, Other)
  Sender: FDA-Public Use
  Company Number: None

PATIENT
  Age: 57 Year
  Sex: Male
  Weight: 49 kg

DRUGS (3)
  1. CAPECITABINE [Suspect]
     Active Substance: CAPECITABINE
     Indication: Colon cancer
     Route: 048
     Dates: start: 20220916, end: 20220929
  2. OXALIPLATIN [Suspect]
     Active Substance: OXALIPLATIN
     Indication: Colon cancer
     Dates: start: 20220915, end: 20220915
  3. CEFTRIAXONE SODIUM [Suspect]
     Active Substance: CEFTRIAXONE SODIUM
     Indication: Infection
     Dates: start: 20221001, end: 20221001

REACTIONS (5)
  - Rash maculo-papular [Recovered/Resolved]
  - Cheilitis [Unknown]
  - Stomatitis [Not Recovered/Not Resolved]
  - Diarrhoea [Unknown]
  - Pancytopenia [Unknown]

NARRATIVE: CASE EVENT DATE: 20221001
